FAERS Safety Report 7326666-4 (Version None)
Quarter: 2011Q1

REPORT INFORMATION
  Report Type: 
  Country: None (occurrence: None)
  Receive Date: 20110302
  Receipt Date: 20110224
  Transmission Date: 20110831
  Serious: Yes (Death, Other)
  Sender: FDA-Public Use
  Company Number: US-GENZYME-FABR-1001591

PATIENT
  Sex: Female
  Weight: 110 kg

DRUGS (2)
  1. FABRAZYME [Suspect]
     Dosage: 100 MG, Q3W
     Route: 042
  2. FABRAZYME [Suspect]
     Indication: FABRY'S DISEASE
     Dosage: 100 MG, Q2W
     Dates: start: 20040401

REACTIONS (4)
  - PNEUMONIA [None]
  - RESPIRATORY FAILURE [None]
  - KIDNEY TRANSPLANT REJECTION [None]
  - WOUND INFECTION [None]
